FAERS Safety Report 9547396 (Version 2)
Quarter: 2013Q3

REPORT INFORMATION
  Report Type: Spontaneous
  Country: US (occurrence: None)
  Receive Date: 20130606
  Receipt Date: 20130906
  Transmission Date: 20140515
  Serious: Yes (Hospitalization)
  Sender: FDA-Public Use
  Company Number: 163-POMAL-13043353

PATIENT
  Age: 68 Year
  Sex: Female

DRUGS (11)
  1. POMALYST [Suspect]
     Indication: PLASMA CELL MYELOMA
     Dosage: 4 MG, 21 IN 21 D, PO
     Route: 048
     Dates: start: 20130412
  2. ASPIRIN EC. C(ACETYLSALICYLIC ACID)(ENTERIC-COATED TABLET) [Concomitant]
  3. SYNTHROID(LEVOTHYROXINE SODIUM) [Concomitant]
  4. LYRICA (PREGABALIN) [Concomitant]
  5. PANTOPRAZOLE (PANTOPRAZOLE) [Concomitant]
  6. POTASSIUM CL ER (POTASSIUM CHLORIDE) [Concomitant]
  7. ACYCLOVIR (ACICLOVIR) [Concomitant]
  8. ALPRAZOLAM (ALPRAZOLAM) [Concomitant]
  9. DEXAMETHASONE (DEXAMETHASONE) [Concomitant]
  10. HYDROCHLOROTHIAZIDE (HYDROCHLOROTHIAZIDE) [Concomitant]
  11. GABAPENTIN (GABAPENTIN) [Concomitant]

REACTIONS (2)
  - Dyspnoea [None]
  - Pulmonary thrombosis [None]
